FAERS Safety Report 6899275-9 (Version None)
Quarter: 2010Q3

REPORT INFORMATION
  Report Type: 
  Country: None (occurrence: None)
  Receive Date: 20100802
  Receipt Date: 20080904
  Transmission Date: 20110219
  Serious: No
  Sender: FDA-Public Use
  Company Number: US-PFIZER INC-2007038016

PATIENT
  Sex: Male
  Weight: 91 kg

DRUGS (6)
  1. LYRICA [Suspect]
     Indication: PARAESTHESIA
     Dosage: BID: EVERY DAY
     Dates: start: 20061001
  2. LYRICA [Suspect]
     Indication: BURNING SENSATION
  3. LYRICA [Suspect]
     Indication: DIABETES MELLITUS
  4. LOPRESSOR [Concomitant]
  5. PLAVIX [Concomitant]
  6. AVANDAMET [Concomitant]

REACTIONS (5)
  - BLOOD GLUCOSE INCREASED [None]
  - BURNING SENSATION [None]
  - GAIT DISTURBANCE [None]
  - PARAESTHESIA [None]
  - SOMNOLENCE [None]
